FAERS Safety Report 4777866-9 (Version None)
Quarter: 2005Q3

REPORT INFORMATION
  Report Type: 
  Country: None (occurrence: None)
  Receive Date: 20050926
  Receipt Date: 20050919
  Transmission Date: 20060218
  Serious: Yes (Other)
  Sender: FDA-Public Use
  Company Number: IE-BOEHRINGER INGELHEIM PHARMACEUTICALS, INC.-2005-BP-16787YA

PATIENT
  Sex: Male

DRUGS (2)
  1. TAMSULOSIN HYDROCHLORIDE [Suspect]
     Route: 048
     Dates: start: 20050412, end: 20050627
  2. DIFENE [Suspect]
     Dates: start: 20050601

REACTIONS (1)
  - HYPERTENSION [None]
